FAERS Safety Report 18356108 (Version 2)
Quarter: 2020Q4

REPORT INFORMATION
  Report Type: Spontaneous
  Country: SE (occurrence: SE)
  Receive Date: 20201007
  Receipt Date: 20201012
  Transmission Date: 20210114
  Serious: Yes (Hospitalization, Other)
  Sender: FDA-Public Use
  Company Number: SE-SHIRE-SE202028337

PATIENT

DRUGS (9)
  1. ELVANSE [Suspect]
     Active Substance: LISDEXAMFETAMINE DIMESYLATE
     Dosage: 40 MILLIGRAM, 1X/DAY:QD
     Route: 065
  2. ELVANSE [Suspect]
     Active Substance: LISDEXAMFETAMINE DIMESYLATE
     Indication: ATTENTION DEFICIT HYPERACTIVITY DISORDER
     Dosage: 20 MILLIGRAM, 1X/DAY:QD
     Route: 065
  3. ELVANSE [Suspect]
     Active Substance: LISDEXAMFETAMINE DIMESYLATE
     Dosage: 60 MILLIGRAM, 1X/DAY:QD
     Route: 065
  4. ELVANSE [Suspect]
     Active Substance: LISDEXAMFETAMINE DIMESYLATE
     Dosage: 40 MILLIGRAM, 1X/DAY:QD
     Route: 065
  5. ELVANSE [Suspect]
     Active Substance: LISDEXAMFETAMINE DIMESYLATE
     Dosage: 20 MILLIGRAM, 1X/DAY:QD
     Route: 065
  6. LEVAXIN [Concomitant]
     Active Substance: LEVOTHYROXINE SODIUM
     Indication: PRODUCT USED FOR UNKNOWN INDICATION
  7. SERTRALIN [SERTRALINE] [Concomitant]
     Active Substance: SERTRALINE HYDROCHLORIDE
     Indication: PRODUCT USED FOR UNKNOWN INDICATION
  8. PARAFLEX [IBUPROFEN] [Concomitant]
     Indication: PRODUCT USED FOR UNKNOWN INDICATION
  9. PARACETAMOL [Concomitant]
     Active Substance: ACETAMINOPHEN
     Indication: PRODUCT USED FOR UNKNOWN INDICATION

REACTIONS (17)
  - Hyperhidrosis [Unknown]
  - Hypertension [Unknown]
  - Adverse drug reaction [Unknown]
  - Suicidal ideation [Unknown]
  - Therapeutic product effect decreased [Unknown]
  - Mania [Unknown]
  - Fatigue [Unknown]
  - Bruxism [Unknown]
  - Headache [Unknown]
  - Vision blurred [Unknown]
  - Burnout syndrome [Unknown]
  - Dizziness [Unknown]
  - Muscle spasms [Unknown]
  - Asthenia [Unknown]
  - Jaw disorder [Unknown]
  - Feeling abnormal [Not Recovered/Not Resolved]
  - Anxiety [Unknown]
